FAERS Safety Report 13717559 (Version 1)
Quarter: 2017Q3

REPORT INFORMATION
  Report Type: Spontaneous
  Country: US (occurrence: US)
  Receive Date: 20170703
  Receipt Date: 20170703
  Transmission Date: 20171127
  Serious: No
  Sender: FDA-Public Use
  Company Number: None

PATIENT
  Sex: Female

DRUGS (1)
  1. NINLARO [Suspect]
     Active Substance: IXAZOMIB
     Indication: PRODUCT USED FOR UNKNOWN INDICATION
     Dosage: DOSE - PO EVERY 7 DAYS FOR 3 WEEKS ON AND 1 WEEK OFF
     Route: 048
     Dates: start: 20161031

REACTIONS (1)
  - Paraesthesia [None]
